FAERS Safety Report 7250361-3 (Version None)
Quarter: 2011Q1

REPORT INFORMATION
  Report Type: 
  Country: None (occurrence: None)
  Receive Date: 20110128
  Receipt Date: 20100222
  Transmission Date: 20110831
  Serious: No
  Sender: FDA-Public Use
  Company Number: A0845484A

PATIENT
  Sex: Male

DRUGS (2)
  1. KALETRA [Suspect]
     Indication: HIV INFECTION
     Dosage: 2TAB TWICE PER DAY
     Route: 048
     Dates: start: 20091110
  2. COMBIVIR [Suspect]
     Indication: HIV INFECTION
     Route: 048
     Dates: start: 20091110

REACTIONS (5)
  - SKIN EXFOLIATION [None]
  - DANDRUFF [None]
  - ERYTHEMA [None]
  - VIRAL LOAD DECREASED [None]
  - RASH ERYTHEMATOUS [None]
